FAERS Safety Report 19063722 (Version 1)
Quarter: 2021Q1

REPORT INFORMATION
  Report Type: Spontaneous
  Country: GB (occurrence: GB)
  Receive Date: 20210326
  Receipt Date: 20210326
  Transmission Date: 20210420
  Serious: Yes (Life-Threatening, Hospitalization)
  Sender: FDA-Public Use
  Company Number: GB-TEVA-2021-GB-1892592

PATIENT
  Sex: Male
  Weight: 67 kg

DRUGS (5)
  1. RIFAMPIN. [Concomitant]
     Active Substance: RIFAMPIN
     Route: 065
  2. DAPTOMYCIN. [Suspect]
     Active Substance: DAPTOMYCIN
     Indication: ENDOCARDITIS STAPHYLOCOCCAL
     Route: 065
  3. GENTAMICIN. [Concomitant]
     Active Substance: GENTAMICIN
     Route: 065
  4. VANCOMYCIN [Concomitant]
     Active Substance: VANCOMYCIN
     Route: 065
  5. CLINDAMYCIN HYDROCHLORIDE. [Suspect]
     Active Substance: CLINDAMYCIN HYDROCHLORIDE
     Indication: ENDOCARDITIS STAPHYLOCOCCAL
     Route: 065

REACTIONS (7)
  - Staphylococcal infection [Unknown]
  - Necrotising fasciitis [Unknown]
  - Off label use [Unknown]
  - Limb discomfort [Unknown]
  - Joint swelling [Unknown]
  - Chest pain [Unknown]
  - Staphylococcal sepsis [Unknown]
